FAERS Safety Report 14271716 (Version 10)
Quarter: 2021Q3

REPORT INFORMATION
  Report Type: Spontaneous
  Country: ES (occurrence: ES)
  Receive Date: 20171211
  Receipt Date: 20210719
  Transmission Date: 20211014
  Serious: Yes (Hospitalization, Other)
  Sender: FDA-Public Use
  Company Number: ES-009507513-1712ESP003760

PATIENT
  Age: 78 Year
  Sex: Male

DRUGS (4)
  1. MEROPENEM. [Interacting]
     Active Substance: MEROPENEM
     Indication: PYREXIA
     Dosage: 3 G, QD
     Route: 042
     Dates: start: 20171002, end: 20171010
  2. ERTAPENEM SODIUM [Interacting]
     Active Substance: ERTAPENEM SODIUM
     Indication: URINARY TRACT INFECTION
  3. QUETIAPINE FUMARATE. [Interacting]
     Active Substance: QUETIAPINE FUMARATE
     Indication: PSYCHOMOTOR HYPERACTIVITY
     Dosage: 25 MG, QD
     Route: 048
     Dates: start: 20170928, end: 20171003
  4. ERTAPENEM SODIUM [Suspect]
     Active Substance: ERTAPENEM SODIUM
     Indication: PYREXIA
     Dosage: 1 G, QD
     Route: 042
     Dates: start: 20170929, end: 20171002

REACTIONS (2)
  - Encephalopathy [Recovered/Resolved]
  - Product use in unapproved indication [Unknown]

NARRATIVE: CASE EVENT DATE: 20171002
